FAERS Safety Report 10031657 (Version 2)
Quarter: 2014Q2

REPORT INFORMATION
  Report Type: Report from Study
  Country: JP (occurrence: JP)
  Receive Date: 20140324
  Receipt Date: 20140430
  Transmission Date: 20141212
  Serious: Yes (Hospitalization)
  Sender: FDA-Public Use
  Company Number: JP-SA-2014SA033783

PATIENT
  Age: 34 Year
  Sex: Female
  Weight: 44 kg

DRUGS (15)
  1. THYMOGLOBULINE [Suspect]
     Indication: APLASTIC ANAEMIA
     Route: 042
     Dates: start: 20130521, end: 20130525
  2. CHLOR-TRIMETON [Concomitant]
     Indication: PROPHYLAXIS
     Dates: start: 20130515, end: 20130806
  3. SOLU-CORTEF [Concomitant]
     Indication: PROPHYLAXIS
     Dates: start: 20130515, end: 20130806
  4. BAKTAR [Concomitant]
     Indication: INFECTION PROPHYLAXIS
     Dates: start: 20130516
  5. NEXIUM [Concomitant]
     Indication: PROPHYLAXIS
     Dates: start: 20130516
  6. DEPAS [Concomitant]
     Indication: ANXIETY DISORDER
     Dates: start: 20130516, end: 20130807
  7. XYLOCAINE [Concomitant]
     Indication: STOMATITIS
     Dates: start: 20130520
  8. DEXALTIN [Concomitant]
     Indication: STOMATITIS
     Route: 048
     Dates: start: 20130520
  9. BROTIZOLAM [Concomitant]
     Indication: PROPHYLAXIS
     Dates: start: 20130522
  10. ACICLOVIR [Concomitant]
     Indication: INFECTION PROPHYLAXIS
     Dates: start: 20130523
  11. ITRIZOLE [Concomitant]
     Indication: INFECTION PROPHYLAXIS
     Dates: start: 20130516
  12. NEUTROGIN [Concomitant]
     Indication: APLASTIC ANAEMIA
     Dates: start: 20130516, end: 20130717
  13. NEORAL [Concomitant]
     Indication: APLASTIC ANAEMIA
     Dates: start: 20130520
  14. HACHIAZULE [Concomitant]
     Indication: STOMATITIS
     Dates: start: 20130520
  15. BLOOD TRANSFUSION, AUXILIARY PRODUCTS [Concomitant]
     Indication: APLASTIC ANAEMIA
     Dates: start: 20130515, end: 20130806

REACTIONS (1)
  - Febrile neutropenia [Recovered/Resolved]
